FAERS Safety Report 10048603 (Version 1)
Quarter: 2014Q1

REPORT INFORMATION
  Report Type: Spontaneous
  Country: US (occurrence: US)
  Receive Date: 20140331
  Receipt Date: 20140331
  Transmission Date: 20141002
  Serious: Yes (Other)
  Sender: FDA-Public Use
  Company Number: US-MYLANLABS-2014S1006689

PATIENT
  Age: 15 Year
  Sex: Male
  Weight: 54.43 kg

DRUGS (4)
  1. EPIPEN 2-PAK [Suspect]
     Indication: FOOD ALLERGY
     Route: 030
     Dates: start: 2011
  2. XOPENEX [Concomitant]
     Indication: ASTHMA
     Route: 055
     Dates: start: 2002
  3. SINGULAIR [Concomitant]
     Indication: ASTHMA
     Dosage: TAKEN FOR YEARS
     Route: 048
  4. PULMICORT [Concomitant]
     Indication: ASTHMA
     Dosage: TAKEN FOR YEARS
     Route: 055

REACTIONS (3)
  - Injection site laceration [Not Recovered/Not Resolved]
  - Anxiety [Recovered/Resolved]
  - Needle issue [Recovered/Resolved]
